FAERS Safety Report 8529322-X (Version None)
Quarter: 2012Q3

REPORT INFORMATION
  Report Type: 
  Country: None (occurrence: None)
  Receive Date: 20120717
  Receipt Date: 20120717
  Transmission Date: 20120928
  Serious: No
  Sender: FDA-Public Use
  Company Number: None

PATIENT

DRUGS (1)
  1. CREST PRO-HEALTH CLINICAL [Suspect]
     Dates: start: 20120520, end: 20120521

REACTIONS (3)
  - SWOLLEN TONGUE [None]
  - GLOSSODYNIA [None]
  - DYSGEUSIA [None]
